FAERS Safety Report 15666707 (Version 1)
Quarter: 2018Q4

REPORT INFORMATION
  Report Type: Spontaneous
  Country: US (occurrence: US)
  Receive Date: 20181128
  Receipt Date: 20181128
  Transmission Date: 20190205
  Serious: No
  Sender: FDA-Public Use
  Company Number: US-ROCHE-2119970

PATIENT
  Sex: Female

DRUGS (1)
  1. OCREVUS [Suspect]
     Active Substance: OCRELIZUMAB
     Indication: SECONDARY PROGRESSIVE MULTIPLE SCLEROSIS
     Route: 065

REACTIONS (6)
  - Rash [Unknown]
  - Eczema [Not Recovered/Not Resolved]
  - Acne [Unknown]
  - Intentional product use issue [Unknown]
  - Off label use [Unknown]
  - Skin ulcer [Unknown]
